FAERS Safety Report 7825036-X (Version None)
Quarter: 2011Q4

REPORT INFORMATION
  Report Type: 
  Country: None (occurrence: None)
  Receive Date: 20111019
  Receipt Date: 20110404
  Transmission Date: 20120403
  Serious: No
  Sender: FDA-Public Use
  Company Number: US-BRISTOL-MYERS SQUIBB COMPANY-15652662

PATIENT
  Age: 62 Year
  Sex: Female
  Weight: 89 kg

DRUGS (4)
  1. AVALIDE [Suspect]
  2. VITAMIN D [Concomitant]
  3. SIMVASTATIN [Concomitant]
  4. METFORMIN HCL [Concomitant]

REACTIONS (1)
  - BLOOD PRESSURE FLUCTUATION [None]
